FAERS Safety Report 7184133-5 (Version None)
Quarter: 2010Q4

REPORT INFORMATION
  Report Type: 
  Country: None (occurrence: None)
  Receive Date: 20101222
  Receipt Date: 20101209
  Transmission Date: 20110411
  Serious: Yes (Hospitalization, Other)
  Sender: FDA-Public Use
  Company Number: DE-ELI_LILLY_AND_COMPANY-DE201012002471

PATIENT
  Age: 50 Year
  Sex: Female

DRUGS (2)
  1. FORTEO [Suspect]
     Indication: OSTEOPOROSIS
     Dosage: 20 UG, DAILY (1/D)
     Route: 058
     Dates: start: 20100914
  2. CALCILAC KT [Concomitant]
     Indication: OSTEOPOROSIS
     Dosage: 500MG CALCIUM CARBONATE/10UG COLECALCIFEROL , 2/D
     Route: 048
     Dates: start: 20100914

REACTIONS (3)
  - HIATUS HERNIA [None]
  - MINERAL DEFICIENCY [None]
  - NAUSEA [None]
